FAERS Safety Report 7328598-4 (Version None)
Quarter: 2011Q1

REPORT INFORMATION
  Report Type: 
  Country: None (occurrence: None)
  Receive Date: 20110303
  Receipt Date: 20110210
  Transmission Date: 20110831
  Serious: Yes (Hospitalization, Other)
  Sender: FDA-Public Use
  Company Number: US-JNJFOC-20110206210

PATIENT
  Sex: Male
  Weight: 64 kg

DRUGS (20)
  1. DEXAMETHASONE [Concomitant]
     Indication: MULTIPLE MYELOMA
     Route: 048
  2. LEVAQUIN [Suspect]
     Indication: DYSPNOEA
     Route: 065
  3. PROMETHAZINE [Concomitant]
  4. HYDROMORPHONE [Concomitant]
  5. DOXIL [Concomitant]
     Indication: MULTIPLE MYELOMA
     Route: 042
  6. VYTORIN [Concomitant]
  7. ADVAIR DISKUS 100/50 [Concomitant]
  8. ASPIRIN [Concomitant]
     Route: 065
  9. ACETAMINOPHEN [Concomitant]
     Route: 065
  10. LEVAQUIN [Suspect]
     Indication: PYREXIA
     Route: 065
  11. MIRTAZAPINE [Concomitant]
  12. CYCLOPHOSPHAMIDE [Concomitant]
     Indication: MULTIPLE MYELOMA
     Route: 042
  13. DUONEB [Concomitant]
     Route: 055
  14. NEXIUM [Concomitant]
  15. LORAZEPAM [Concomitant]
  16. THEOPHYLLINE [Concomitant]
     Route: 048
  17. BORTEZOMIB [Concomitant]
     Indication: MULTIPLE MYELOMA
     Route: 042
  18. EFFEXOR [Concomitant]
  19. HYDROCODONE [Concomitant]
     Route: 048
  20. AUGMENTIN '125' [Suspect]
     Indication: PNEUMONIA
     Route: 065

REACTIONS (3)
  - ATRIAL FIBRILLATION [None]
  - DIARRHOEA [None]
  - DRUG INEFFECTIVE [None]
